FAERS Safety Report 10637460 (Version 2)
Quarter: 2014Q4

REPORT INFORMATION
  Report Type: Spontaneous
  Country: FR (occurrence: None)
  Receive Date: 20141204
  Receipt Date: 20141223
  Transmission Date: 20150529
  Serious: Yes (Hospitalization)
  Sender: FDA-Public Use
  Company Number: FR-2014-4498

PATIENT
  Age: 55 Year
  Sex: Male

DRUGS (23)
  1. ZAMUDOL [Suspect]
     Active Substance: TRAMADOL HYDROCHLORIDE
     Indication: NAUSEA
     Route: 048
  2. MOTILIUM [Suspect]
     Active Substance: DOMPERIDONE
     Indication: NAUSEA
     Route: 048
     Dates: start: 20140918, end: 20140923
  3. CISPLATIN (CISPLATIN) [Suspect]
     Active Substance: CISPLATIN
     Indication: LUNG ADENOCARCINOMA
     Route: 042
     Dates: start: 20140918, end: 20140918
  4. DIAMICRON (GLICLAZIDE) [Concomitant]
     Active Substance: GLICLAZIDE
  5. SIFROL (PRAMIPEXOLE DIHYDROCHLORIDE) [Concomitant]
  6. ONDANSETRON. [Suspect]
     Active Substance: ONDANSETRON
     Indication: NAUSEA
     Route: 048
     Dates: start: 20140918, end: 20140918
  7. MODOPAR [Suspect]
     Active Substance: BENSERAZIDE HYDROCHLORIDE\LEVODOPA
     Indication: RESTLESS LEGS SYNDROME
     Route: 048
     Dates: start: 20140917, end: 20140923
  8. LEVOTHYROX (LEVOTHYROXINE SODIUM) [Concomitant]
     Active Substance: LEVOTHYROXINE SODIUM
  9. EUCREAS (METFORMIN HYDROCHLORIDE, VIDAGLIPTIN) [Concomitant]
  10. RAMIPRIL (RAMIPRIL) [Concomitant]
     Active Substance: RAMIPRIL
  11. LAROXYL (AMITRIPTYLINE HYDROCHLORIDE) [Concomitant]
  12. METHYLPREDNISOLON (METHYLPREDNISOLONE) [Concomitant]
  13. RABEPRAZOLE (RABEPRAZOLE) [Suspect]
     Active Substance: RABEPRAZOLE
     Indication: PRODUCT USED FOR UNKNOWN INDICATION
  14. PLAVIX (CLOPIDOGREL BISULFATE) [Concomitant]
  15. CONTRAMAL [Suspect]
     Active Substance: TRAMADOL HYDROCHLORIDE
     Indication: PAIN
     Route: 048
     Dates: start: 20140918, end: 20140923
  16. ESOMEPRAZOLE (ESOMEPRAZOLE) [Suspect]
     Active Substance: ESOMEPRAZOLE
     Indication: PRODUCT USED FOR UNKNOWN INDICATION
     Dates: start: 20140918
  17. PRAVASTATIN (PRAVASTATIN SODIUM) [Concomitant]
  18. OXYNORM [Suspect]
     Active Substance: OXYCODONE HYDROCHLORIDE
     Indication: PAIN
     Route: 048
     Dates: start: 20140918, end: 20140923
  19. GLUCOPHAGE [Concomitant]
     Active Substance: METFORMIN HYDROCHLORIDE
  20. NAVELBINE [Suspect]
     Active Substance: VINORELBINE TARTRATE
     Indication: LUNG ADENOCARCINOMA
     Dosage: 25 MG/M2, SINGLE ?INTRAVENOUS?
     Route: 042
     Dates: start: 20140918
  21. EMEND [Suspect]
     Active Substance: APREPITANT
     Indication: NAUSEA
     Dates: start: 20140918, end: 20140918
  22. DOMPERIDONE [Suspect]
     Active Substance: DOMPERIDONE
     Indication: NAUSEA
     Route: 048
  23. GABAPENTINE (GABAPENTIN) [Concomitant]

REACTIONS (7)
  - Acute kidney injury [None]
  - Hepatitis fulminant [None]
  - Prothrombin time prolonged [None]
  - Overdose [None]
  - Anaemia [None]
  - Hepatocellular injury [None]
  - Thrombocytopenia [None]

NARRATIVE: CASE EVENT DATE: 20140923
